FAERS Safety Report 7499294-8 (Version None)
Quarter: 2011Q2

REPORT INFORMATION
  Report Type: 
  Country: None (occurrence: None)
  Receive Date: 20110524
  Receipt Date: 20110519
  Transmission Date: 20111010
  Serious: Yes (Hospitalization)
  Sender: FDA-Public Use
  Company Number: JP-SANOFI-AVENTIS-2011SA019274

PATIENT
  Age: 23 Year
  Sex: Female

DRUGS (3)
  1. DEPAKENE [Concomitant]
     Indication: EPILEPSY
     Dates: end: 20110324
  2. ALLEGRA [Suspect]
     Indication: RHINITIS ALLERGIC
     Route: 048
     Dates: start: 20110101, end: 20110324
  3. ONON [Suspect]
     Indication: RHINITIS ALLERGIC
     Dates: start: 20110201, end: 20110324

REACTIONS (1)
  - LIVER DISORDER [None]
